FAERS Safety Report 5688876-1 (Version None)
Quarter: 2008Q1

REPORT INFORMATION
  Report Type: 
  Country: None (occurrence: None)
  Receive Date: 20080331
  Receipt Date: 20051227
  Transmission Date: 20080703
  Serious: Yes (Death)
  Sender: FDA-Public Use
  Company Number: JP-ROCHE-430021

PATIENT
  Age: 49 Year
  Sex: Female
  Weight: 43 kg

DRUGS (22)
  1. XELODA [Suspect]
     Indication: BREAST CANCER METASTATIC
     Route: 048
     Dates: start: 20050117
  2. XELODA [Suspect]
     Route: 048
     Dates: start: 20050829, end: 20050918
  3. XELODA [Suspect]
     Route: 048
     Dates: start: 20051003, end: 20051007
  4. XELODA [Suspect]
     Route: 048
     Dates: start: 20051024, end: 20051025
  5. XELODA [Suspect]
     Route: 048
     Dates: start: 20051107, end: 20051119
  6. XELODA [Suspect]
     Route: 048
     Dates: start: 20051128
  7. SELBEX [Concomitant]
     Indication: BREAST CANCER METASTATIC
     Route: 048
     Dates: start: 20040101
  8. AREDIA [Concomitant]
     Route: 041
     Dates: start: 20040204, end: 20041020
  9. AREDIA [Concomitant]
     Route: 041
     Dates: start: 20050720, end: 20051122
  10. AREDIA [Concomitant]
     Route: 041
     Dates: start: 20050111, end: 20050614
  11. TERNELIN [Concomitant]
     Route: 048
     Dates: start: 20040101
  12. LAC B [Concomitant]
     Route: 048
     Dates: start: 20041214
  13. OXYCONTIN [Concomitant]
     Route: 048
     Dates: start: 20050126
  14. FERROMIA [Concomitant]
     Route: 048
     Dates: start: 20050906
  15. KYTRIL [Concomitant]
     Route: 048
     Dates: start: 20051024
  16. TRYPTANOL [Concomitant]
     Route: 048
     Dates: start: 20051025
  17. KADIAN [Concomitant]
  18. DUROTEP [Concomitant]
     Route: 061
  19. PENTAZOCINE LACTATE [Concomitant]
  20. NOVAMIN [Concomitant]
  21. LOXONIN [Concomitant]
     Route: 048
  22. VOLTAREN [Concomitant]
     Route: 054

REACTIONS (5)
  - ANOREXIA [None]
  - DEATH [None]
  - FEMUR FRACTURE [None]
  - MALAISE [None]
  - NAUSEA [None]
